FAERS Safety Report 12786057 (Version 1)
Quarter: 2016Q3

REPORT INFORMATION
  Report Type: Spontaneous
  Country: US (occurrence: US)
  Receive Date: 20160927
  Receipt Date: 20160927
  Transmission Date: 20161109
  Serious: No
  Sender: FDA-Public Use
  Company Number: US-FRI-1000084328

PATIENT
  Sex: Female

DRUGS (3)
  1. LINZESS [Suspect]
     Active Substance: LINACLOTIDE
     Indication: CONSTIPATION
     Dosage: 290 ?G, UNK
     Route: 048
     Dates: start: 20160420, end: 20160425
  2. LINZESS [Suspect]
     Active Substance: LINACLOTIDE
     Indication: ILL-DEFINED DISORDER
  3. SEROQUEL [Concomitant]
     Active Substance: QUETIAPINE FUMARATE
     Indication: BIPOLAR DISORDER
     Dosage: UNK
     Route: 048

REACTIONS (9)
  - Skin tightness [Not Recovered/Not Resolved]
  - Abdominal pain upper [Recovered/Resolved]
  - Decreased appetite [Not Recovered/Not Resolved]
  - Off label use [Recovered/Resolved]
  - Gastric dilatation [Not Recovered/Not Resolved]
  - Abdominal distension [Not Recovered/Not Resolved]
  - Constipation [Not Recovered/Not Resolved]
  - Expired product administered [Recovered/Resolved]
  - Drug ineffective [Recovered/Resolved]

NARRATIVE: CASE EVENT DATE: 2016
